FAERS Safety Report 23794623 (Version 1)
Quarter: 2024Q2

REPORT INFORMATION
  Report Type: Report from Study
  Country: IT (occurrence: IT)
  Receive Date: 20240429
  Receipt Date: 20240429
  Transmission Date: 20240715
  Serious: Yes (Hospitalization)
  Sender: FDA-Public Use
  Company Number: None

PATIENT
  Age: 57 Year
  Sex: Male

DRUGS (1)
  1. STELARA [Suspect]
     Active Substance: USTEKINUMAB
     Indication: Crohn^s disease
     Route: 058

REACTIONS (6)
  - Pneumonia cytomegaloviral [Recovered/Resolved]
  - Subarachnoid haemorrhage [Recovered/Resolved]
  - Multiple organ dysfunction syndrome [Recovered/Resolved]
  - Septic shock [Recovered/Resolved]
  - Acute respiratory failure [Recovered/Resolved]
  - Thrombocytopenia [Recovered/Resolved]

NARRATIVE: CASE EVENT DATE: 20240101
